FAERS Safety Report 14775978 (Version 4)
Quarter: 2019Q2

REPORT INFORMATION
  Report Type: Spontaneous
  Country: GB (occurrence: GB)
  Receive Date: 20180418
  Receipt Date: 20190412
  Transmission Date: 20190711
  Serious: Yes (Hospitalization, Other)
  Sender: FDA-Public Use
  Company Number: GB-BAUSCH-BL-2018-010119

PATIENT
  Age: 72 Year
  Sex: Male

DRUGS (8)
  1. DEXAMETHASONE. [Suspect]
     Active Substance: DEXAMETHASONE
     Indication: PRODUCT USED FOR UNKNOWN INDICATION
     Route: 065
  2. WARFARIN [Concomitant]
     Active Substance: WARFARIN
     Indication: ATRIAL FIBRILLATION
     Route: 065
  3. LENALIDOMIDE [Suspect]
     Active Substance: LENALIDOMIDE
     Dosage: DOSE REDUCED
     Route: 065
  4. PREGABALIN. [Concomitant]
     Active Substance: PREGABALIN
     Indication: PRODUCT USED FOR UNKNOWN INDICATION
     Route: 065
  5. DEXAMETHASONE. [Suspect]
     Active Substance: DEXAMETHASONE
     Dosage: DOSE REDUCED
     Route: 065
  6. LENALIDOMIDE [Suspect]
     Active Substance: LENALIDOMIDE
     Indication: PRODUCT USED FOR UNKNOWN INDICATION
     Route: 065
     Dates: start: 20180425
  7. IXAZOMIB [Suspect]
     Active Substance: IXAZOMIB
     Indication: PLASMA CELL MYELOMA
     Route: 048
     Dates: start: 20170701
  8. IXAZOMIB [Suspect]
     Active Substance: IXAZOMIB
     Route: 048
     Dates: start: 20180425

REACTIONS (33)
  - Fatigue [Not Recovered/Not Resolved]
  - Lethargy [Unknown]
  - Peripheral swelling [Unknown]
  - Nasopharyngitis [Recovering/Resolving]
  - Muscular weakness [Unknown]
  - Hyperkalaemia [Unknown]
  - Pain in extremity [Not Recovered/Not Resolved]
  - Chills [Recovering/Resolving]
  - Urinary tract infection [Unknown]
  - Epistaxis [Unknown]
  - Contusion [Unknown]
  - Abdominal distension [Unknown]
  - Confusional state [Unknown]
  - Light chain analysis increased [Unknown]
  - Dyspnoea exertional [Unknown]
  - Spinal cord compression [Unknown]
  - Gastroenteritis norovirus [Unknown]
  - Neutropenia [Unknown]
  - Depressed mood [Unknown]
  - Constipation [Unknown]
  - Rales [Unknown]
  - Rash [Unknown]
  - Corona virus infection [Recovering/Resolving]
  - Influenza [Unknown]
  - Asthenia [Not Recovered/Not Resolved]
  - Haemoglobin abnormal [Unknown]
  - Feeling abnormal [Unknown]
  - Incontinence [Not Recovered/Not Resolved]
  - Productive cough [Unknown]
  - Malaise [Recovering/Resolving]
  - Diarrhoea [Unknown]
  - Thrombocytopenia [Not Recovered/Not Resolved]
  - Hypernatraemia [Unknown]

NARRATIVE: CASE EVENT DATE: 20171120
